FAERS Safety Report 20449976 (Version 1)
Quarter: 2022Q1

REPORT INFORMATION
  Report Type: Spontaneous
  Country: US (occurrence: None)
  Receive Date: 20220208
  Receipt Date: 20220208
  Transmission Date: 20220423
  Serious: Yes (Life-Threatening, Disabling)
  Sender: FDA-Public Use
  Company Number: None

PATIENT
  Age: 21 Year
  Weight: 60.75 kg

DRUGS (1)
  1. IBUPROFEN [Suspect]
     Active Substance: IBUPROFEN
     Indication: Product used for unknown indication
     Dates: start: 20220111, end: 20220118

REACTIONS (4)
  - Tinnitus [None]
  - Deafness [None]
  - Condition aggravated [None]
  - Emotional distress [None]

NARRATIVE: CASE EVENT DATE: 20220111
